FAERS Safety Report 8774256 (Version 1)
Quarter: 2012Q4

REPORT INFORMATION
  Report Type: 
  Country: US (occurrence: US)
  Receive Date: 20120907
  Receipt Date: 20120907
  Transmission Date: 20130627
  Serious: Yes (Other)
  Sender: FDA-Public Use
  Company Number: US-009507513-1206USA05069

PATIENT

DRUGS (4)
  1. FOSAMAX [Suspect]
     Route: 048
     Dates: start: 2003, end: 2011
  2. FOSAMAX [Suspect]
     Dosage: UNK
     Route: 048
     Dates: start: 2003, end: 2011
  3. BONIVA [Suspect]
     Route: 048
     Dates: start: 2003, end: 2011
  4. IBANDRONATE SODIUM [Suspect]
     Route: 048
     Dates: start: 2003, end: 2011

REACTIONS (2)
  - Femur fracture [Unknown]
  - Bone disorder [Unknown]
